FAERS Safety Report 19069574 (Version 2)
Quarter: 2021Q2

REPORT INFORMATION
  Report Type: Spontaneous
  Country: CA (occurrence: CA)
  Receive Date: 20210329
  Receipt Date: 20210525
  Transmission Date: 20210717
  Serious: Yes (Other)
  Sender: FDA-Public Use
  Company Number: CA-TAKEDA-2021TUS018696

PATIENT
  Age: 47 Year
  Sex: Male

DRUGS (25)
  1. BUDESONIDE. [Suspect]
     Active Substance: BUDESONIDE
     Dosage: UNK
     Route: 050
  2. CALCIUM D?PANTOTHENATE [Concomitant]
     Active Substance: CALCIUM PANTOTHENATE
     Dosage: 1 DOSAGE FORM, QD
  3. MYCOPHENOLATE MOFETIL. [Concomitant]
     Active Substance: MYCOPHENOLATE MOFETIL
     Indication: LIVER TRANSPLANT
     Dosage: 1000 MILLIGRAM, 2 EVERY 1 DAYS
  4. PAROXETINE. [Concomitant]
     Active Substance: PAROXETINE
     Dosage: 20 MILLIGRAM
     Route: 048
  5. CIPROFLOXACIN. [Concomitant]
     Active Substance: CIPROFLOXACIN
  6. ERGOCALCIFEROL. [Concomitant]
     Active Substance: ERGOCALCIFEROL
  7. PANTOPRAZOLE [Concomitant]
     Active Substance: PANTOPRAZOLE
     Dosage: 40 MILLIGRAM
  8. MESALAZINE [Suspect]
     Active Substance: MESALAMINE
     Dosage: 4 GRAM, QD
     Route: 065
  9. CALCIUM [Concomitant]
     Active Substance: CALCIUM
     Dosage: 1 DOSAGE FORM, QD
  10. CORTIFOAM [Concomitant]
     Active Substance: HYDROCORTISONE ACETATE
  11. PENTASA [Concomitant]
     Active Substance: MESALAMINE
  12. URSODIOL. [Concomitant]
     Active Substance: URSODIOL
     Dosage: 500 MILLIGRAM, 2 EVERY 1 DAYS
  13. APIXABAN [Concomitant]
     Active Substance: APIXABAN
     Dosage: 5 MILLIGRAM, 2 EVERY 1 DAY
  14. MESALAZINE [Suspect]
     Active Substance: MESALAMINE
     Indication: PRODUCT USED FOR UNKNOWN INDICATION
     Dosage: 2.4 GRAM, QD
     Route: 065
  15. ENTOCORT [Concomitant]
     Active Substance: BUDESONIDE
     Dosage: 9 MILLIGRAM, QD
  16. MEZAVANT [Concomitant]
     Active Substance: MESALAMINE
     Dosage: 2.4 GRAM, QD
  17. SIROLIMUS. [Concomitant]
     Active Substance: SIROLIMUS
     Dosage: 3 MILLIGRAM, QD
  18. METRONIDAZOLE. [Concomitant]
     Active Substance: METRONIDAZOLE
     Dosage: 500 MILLIGRAM, 2 EVERY 1 DAYS
  19. MEZAVANT [Concomitant]
     Active Substance: MESALAMINE
     Dosage: 4 UNK
  20. HYDROCORTISONE. [Suspect]
     Active Substance: HYDROCORTISONE
     Indication: PRODUCT USED FOR UNKNOWN INDICATION
     Route: 065
  21. BUDESONIDE. [Suspect]
     Active Substance: BUDESONIDE
     Indication: PRODUCT USED FOR UNKNOWN INDICATION
     Dosage: 9 MILLIGRAM, QD
     Route: 050
  22. BUDESONIDE. [Suspect]
     Active Substance: BUDESONIDE
     Dosage: 6 MILLIGRAM, QD
     Route: 050
  23. ACETYLSALICYLIC ACID [Concomitant]
     Active Substance: ASPIRIN
     Indication: PRODUCT USED FOR UNKNOWN INDICATION
  24. METRONIDAZOLE. [Concomitant]
     Active Substance: METRONIDAZOLE
     Dosage: 500 MILLIGRAM, QD
  25. METRONIDAZOLE BENZOATE [Concomitant]
     Active Substance: METRONIDAZOLE BENZOATE
     Dosage: 500 MILLIGRAM, 3 EVERY 1 DAYS

REACTIONS (8)
  - Gastrointestinal inflammation [Unknown]
  - Diarrhoea [Unknown]
  - Frequent bowel movements [Unknown]
  - Aphthous ulcer [Unknown]
  - Crohn^s disease [Unknown]
  - Gastrointestinal ulcer [Unknown]
  - Pouchitis [Unknown]
  - Proctitis [Unknown]
